FAERS Safety Report 8854761 (Version 1)
Quarter: 2012Q4

REPORT INFORMATION
  Report Type: 
  Country: GR (occurrence: GR)
  Receive Date: 20121023
  Receipt Date: 20121023
  Transmission Date: 20130627
  Serious: Yes (Life-Threatening)
  Sender: FDA-Public Use
  Company Number: GR-BRISTOL-MYERS SQUIBB COMPANY-17037474

PATIENT
  Age: 55 Year
  Sex: Male
  Weight: 89 kg

DRUGS (1)
  1. ARIPIPRAZOLE [Suspect]
     Indication: AFFECTIVE DISORDER
     Route: 048
     Dates: start: 20120629, end: 20120629

REACTIONS (2)
  - Syncope [Recovered/Resolved]
  - Dizziness [Recovered/Resolved]
